FAERS Safety Report 24674590 (Version 1)
Quarter: 2024Q4

REPORT INFORMATION
  Report Type: Spontaneous
  Country: US (occurrence: US)
  Receive Date: 20241128
  Receipt Date: 20241128
  Transmission Date: 20250114
  Serious: Yes (Other)
  Sender: NOVARTIS
  Company Number: US-002147023-NVSC2024US226021

PATIENT
  Sex: Male

DRUGS (4)
  1. ENTRESTO [Suspect]
     Active Substance: SACUBITRIL\VALSARTAN
     Indication: Heart failure with reduced ejection fraction
     Dosage: UNK
     Route: 065
  2. AMIODARONE [Suspect]
     Active Substance: AMIODARONE
     Indication: Product used for unknown indication
     Dosage: UNK
     Route: 065
  3. DOFETILIDE [Concomitant]
     Active Substance: DOFETILIDE
     Indication: Product used for unknown indication
     Dosage: 1 DOSAGE FORM, BID (1 CAPUSLE) (DOSAGE: (500 MCG) (BY MOUTH IN THE MORNING AND AT BEDTIME FOR 14 DAY
     Route: 065
     Dates: start: 20230621, end: 20240115
  4. TAFAMIDIS [Concomitant]
     Active Substance: TAFAMIDIS
     Indication: Product used for unknown indication
     Dosage: 61 MG, QD (DOSAGE: CAPSULE, FORMULATION: BY MOUTH 1 (ONE) TIME EACH DAY)
     Route: 048
     Dates: start: 20240108

REACTIONS (2)
  - Cardiac amyloidosis [Unknown]
  - Dyspnoea [Unknown]
